FAERS Safety Report 5255416-0 (Version None)
Quarter: 2007Q1

REPORT INFORMATION
  Report Type: 
  Country: None (occurrence: None)
  Receive Date: 20070305
  Receipt Date: 20070220
  Transmission Date: 20070707
  Serious: Yes (Hospitalization)
  Sender: FDA-Public Use
  Company Number: JP-MERCK-0702USA03753

PATIENT
  Age: 73 Year
  Sex: Female
  Weight: 47 kg

DRUGS (3)
  1. FOSAMAX [Suspect]
     Indication: OSTEOPOROSIS
     Route: 048
     Dates: end: 20070208
  2. ALKERAN [Concomitant]
     Indication: MULTIPLE MYELOMA
     Route: 065
  3. PREDONINE [Concomitant]
     Indication: MULTIPLE MYELOMA
     Route: 065

REACTIONS (5)
  - DEHYDRATION [None]
  - DIARRHOEA [None]
  - HYPOCALCAEMIA [None]
  - RENAL FAILURE ACUTE [None]
  - VOMITING [None]
